FAERS Safety Report 15404839 (Version 1)
Quarter: 2018Q3

REPORT INFORMATION
  Report Type: Spontaneous
  Country: US (occurrence: US)
  Receive Date: 20180918
  Receipt Date: 20180918
  Transmission Date: 20181010
  Serious: Yes (Hospitalization)
  Sender: FDA-Public Use
  Company Number: None

PATIENT
  Age: 59 Year
  Sex: Female

DRUGS (8)
  1. OXYCODONE [Concomitant]
     Active Substance: OXYCODONE
  2. BUMETANIDE. [Concomitant]
     Active Substance: BUMETANIDE
  3. LIDOCAINE. [Concomitant]
     Active Substance: LIDOCAINE
  4. FUROSEMIDE. [Concomitant]
     Active Substance: FUROSEMIDE
  5. VITAMIN D [Concomitant]
     Active Substance: CHOLECALCIFEROL
  6. HYDROCOMORPHONE [Concomitant]
  7. CEFUROXIME. [Concomitant]
     Active Substance: CEFUROXIME
  8. KISQALI [Suspect]
     Active Substance: RIBOCICLIB
     Indication: BREAST CANCER
     Route: 048
     Dates: start: 20180524

REACTIONS (1)
  - Malaise [None]

NARRATIVE: CASE EVENT DATE: 20180917
